FAERS Safety Report 13469431 (Version 1)
Quarter: 2017Q2

REPORT INFORMATION
  Report Type: Spontaneous
  Country: US (occurrence: US)
  Receive Date: 20170421
  Receipt Date: 20170421
  Transmission Date: 20170830
  Serious: Yes (Other)
  Sender: FDA-Public Use
  Company Number: US-ALLERGAN-1715342US

PATIENT
  Age: 67 Year
  Sex: Female
  Weight: 87.98 kg

DRUGS (4)
  1. CLARITIN [Concomitant]
     Active Substance: LORATADINE
     Indication: SEASONAL ALLERGY
     Dosage: UNK
     Route: 048
  2. RELAFEN [Concomitant]
     Active Substance: NABUMETONE
     Indication: OSTEOARTHRITIS
     Dosage: UNK
     Route: 048
  3. RESTASIS [Suspect]
     Active Substance: CYCLOSPORINE
     Indication: DRY EYE
     Dosage: 1 GTT, BID
     Route: 047
     Dates: start: 201401
  4. LYRICA [Concomitant]
     Active Substance: PREGABALIN
     Indication: SCIATICA
     Dosage: UNK
     Route: 048

REACTIONS (11)
  - Ocular discomfort [Not Recovered/Not Resolved]
  - Hernia repair [Recovered/Resolved]
  - Dental care [Recovered/Resolved]
  - Vision blurred [Not Recovered/Not Resolved]
  - Exostosis [Recovered/Resolved]
  - Depression [Recovering/Resolving]
  - Cataract [Unknown]
  - Wrong technique in product usage process [Unknown]
  - Drug dose omission [Unknown]
  - Knee operation [Recovering/Resolving]
  - Dry eye [Not Recovered/Not Resolved]

NARRATIVE: CASE EVENT DATE: 201401
